FAERS Safety Report 6453627-X (Version None)
Quarter: 2009Q4

REPORT INFORMATION
  Report Type: 
  Country: None (occurrence: None)
  Receive Date: 20091124
  Receipt Date: 20091110
  Transmission Date: 20100525
  Serious: Yes (Other)
  Sender: FDA-Public Use
  Company Number: PHHY2009CA50245

PATIENT
  Age: 68 Year
  Sex: Male

DRUGS (1)
  1. ZOLEDRONIC ACID [Suspect]
     Route: 042

REACTIONS (8)
  - BLINDNESS UNILATERAL [None]
  - CONJUNCTIVAL DISORDER [None]
  - EYE PAIN [None]
  - OCULAR HYPERAEMIA [None]
  - OPTIC ISCHAEMIC NEUROPATHY [None]
  - PAROPHTHALMIA [None]
  - SCLERITIS [None]
  - VISUAL ACUITY REDUCED [None]
